FAERS Safety Report 12385498 (Version 2)
Quarter: 2016Q2

REPORT INFORMATION
  Report Type: Report from Study
  Country: AR (occurrence: AR)
  Receive Date: 20160519
  Receipt Date: 20160617
  Transmission Date: 20160815
  Serious: Yes (Hospitalization, Other)
  Sender: FDA-Public Use
  Company Number: AR-ABBVIE-16K-007-1631070-00

PATIENT
  Sex: Male

DRUGS (1)
  1. HUMIRA [Suspect]
     Active Substance: ADALIMUMAB
     Indication: ANKYLOSING SPONDYLITIS
     Route: 058
     Dates: start: 20151219

REACTIONS (4)
  - Pain [Unknown]
  - Musculoskeletal stiffness [Unknown]
  - Drug effect incomplete [Unknown]
  - Muscle fatigue [Unknown]
